FAERS Safety Report 4489030-1 (Version None)
Quarter: 2004Q4

REPORT INFORMATION
  Report Type: 
  Country: None (occurrence: None)
  Receive Date: 20041027
  Receipt Date: 20040929
  Transmission Date: 20050328
  Serious: Yes (Other)
  Sender: FDA-Public Use
  Company Number: TRP_0019_2004

PATIENT
  Age: 48 Year
  Sex: Female

DRUGS (11)
  1. RIBASPHERE [Suspect]
     Indication: HEPATITIS B
     Dosage: DF PO
     Route: 048
     Dates: start: 20040830
  2. RIBASPHERE [Suspect]
     Indication: HEPATITIS C
     Dosage: DF PO
     Route: 048
     Dates: start: 20040830
  3. PEG-INTRON [Suspect]
     Indication: HEPATITIS B
     Dosage: DF SC
     Route: 058
     Dates: start: 20040830
  4. PEG-INTRON [Suspect]
     Indication: HEPATITIS C
     Dosage: DF SC
     Route: 058
     Dates: start: 20040830
  5. CARISOPRODOL [Concomitant]
  6. DURAGESIC [Concomitant]
  7. OXYCONTIN [Concomitant]
  8. PREMARIN [Concomitant]
  9. PROCARDIA [Concomitant]
  10. ZOLOFT [Concomitant]
  11. STEROIDS (NOS) [Concomitant]

REACTIONS (3)
  - DIARRHOEA [None]
  - NAUSEA [None]
  - VOMITING [None]
